FAERS Safety Report 11740833 (Version 4)
Quarter: 2018Q4

REPORT INFORMATION
  Report Type: Spontaneous
  Country: FR (occurrence: FR)
  Receive Date: 20151114
  Receipt Date: 20181108
  Transmission Date: 20190204
  Serious: Yes (Disabling, Congenital Anomaly)
  Sender: FDA-Public Use
  Company Number: FR-ABBVIE-15P-056-1500345-00

PATIENT
  Sex: Male

DRUGS (1)
  1. DEPAKINE CHRONO [Suspect]
     Active Substance: VALPROATE SODIUM
     Indication: MATERNAL EXPOSURE TIMING UNSPECIFIED
     Route: 064

REACTIONS (12)
  - Supernumerary nipple [Unknown]
  - Foetal exposure during pregnancy [Unknown]
  - Psychomotor skills impaired [Unknown]
  - Congenital anomaly [Unknown]
  - Dysmorphism [Unknown]
  - Pectus excavatum [Unknown]
  - Enuresis [Unknown]
  - Prominent epicanthal folds [Unknown]
  - Developmental delay [Unknown]
  - Anxiety [Unknown]
  - Anger [Unknown]
  - Fear of crowded places [Unknown]
